FAERS Safety Report 12404222 (Version 2)
Quarter: 2017Q1

REPORT INFORMATION
  Report Type: Spontaneous
  Country: US (occurrence: US)
  Receive Date: 20160525
  Receipt Date: 20170328
  Transmission Date: 20170428
  Serious: Yes (Other)
  Sender: FDA-Public Use
  Company Number: US-ELI_LILLY_AND_COMPANY-US201605003034

PATIENT
  Age: 58 Year
  Sex: Female
  Weight: 49 kg

DRUGS (2)
  1. CYMBALTA [Suspect]
     Active Substance: DULOXETINE HYDROCHLORIDE
     Dosage: UNK, QOD
     Route: 065
     Dates: start: 201601
  2. CYMBALTA [Suspect]
     Active Substance: DULOXETINE HYDROCHLORIDE
     Indication: NEUROPATHY PERIPHERAL
     Dosage: 30 MG, QD
     Route: 048
     Dates: start: 20120703

REACTIONS (27)
  - Sensory disturbance [Unknown]
  - Affect lability [Unknown]
  - Paraesthesia [Unknown]
  - Mood swings [Unknown]
  - Thyroid function test abnormal [Unknown]
  - Withdrawal syndrome [Unknown]
  - Suicidal ideation [Unknown]
  - Confusional state [Unknown]
  - Tachyphrenia [Unknown]
  - Irritability [Unknown]
  - Dizziness [Unknown]
  - Off label use [Unknown]
  - Dysphoria [Unknown]
  - Agitation [Unknown]
  - Diarrhoea [Unknown]
  - Anger [Unknown]
  - Insomnia [Unknown]
  - Malaise [Unknown]
  - Hypomania [Unknown]
  - Tinnitus [Unknown]
  - Nausea [Unknown]
  - Headache [Unknown]
  - Basedow^s disease [Unknown]
  - Aspartate aminotransferase increased [Unknown]
  - Alanine aminotransferase increased [Unknown]
  - Fatigue [Unknown]
  - Anxiety [Unknown]

NARRATIVE: CASE EVENT DATE: 2014
